FAERS Safety Report 5358972-7 (Version None)
Quarter: 2007Q2

REPORT INFORMATION
  Report Type: 
  Country: None (occurrence: None)
  Receive Date: 20070615
  Receipt Date: 20070529
  Transmission Date: 20071010
  Serious: Yes (Other)
  Sender: FDA-Public Use
  Company Number: PHEH2007US04835

PATIENT
  Age: 60 Year
  Sex: Female

DRUGS (1)
  1. ZELNORM [Suspect]
     Indication: CONSTIPATION
     Dosage: 6 MG, BID
     Dates: start: 20040505, end: 20070407

REACTIONS (4)
  - CARDIAC DISORDER [None]
  - CONDITION AGGRAVATED [None]
  - HEART RATE INCREASED [None]
  - HEART RATE IRREGULAR [None]
